FAERS Safety Report 11744574 (Version 3)
Quarter: 2015Q4

REPORT INFORMATION
  Report Type: Spontaneous
  Country: US (occurrence: US)
  Receive Date: 20151116
  Receipt Date: 20151230
  Transmission Date: 20160304
  Serious: Yes (Other)
  Sender: FDA-Public Use
  Company Number: US-PFIZER INC-2015376940

PATIENT
  Age: 73 Year
  Sex: Male
  Weight: 94 kg

DRUGS (31)
  1. VITAMIN C [Concomitant]
     Active Substance: ASCORBIC ACID
     Dosage: 500 MG, 1X/DAY
     Dates: start: 20140416
  2. IMODIUM A-D [Concomitant]
     Active Substance: LOPERAMIDE HYDROCHLORIDE
     Dosage: 2 MG, 4X/DAY (IMODIUM A-D )
     Route: 048
     Dates: start: 20150217
  3. RANITIDINE HCL [Concomitant]
     Active Substance: RANITIDINE HYDROCHLORIDE
     Dosage: 1 TABLET, 2X/DAY
     Route: 048
     Dates: start: 20150324
  4. SUTENT [Suspect]
     Active Substance: SUNITINIB MALATE
     Dosage: CYCLE 5 HELD
     Dates: start: 20150819
  5. LISINOPRIL. [Concomitant]
     Active Substance: LISINOPRIL
     Dosage: 40 MG, DAILY
     Route: 048
     Dates: start: 20150922
  6. ALEVE [Concomitant]
     Active Substance: NAPROXEN SODIUM
     Dosage: 330 MG (1.5 TABLET) EVERY 12 HOURS AS NEEDED)
     Route: 048
     Dates: start: 20150303
  7. CETIRIZINE [Concomitant]
     Active Substance: CETIRIZINE HYDROCHLORIDE
     Dosage: 10 MG, DAILY
     Route: 048
     Dates: start: 20150519
  8. FLONASE [Concomitant]
     Active Substance: FLUTICASONE PROPIONATE
     Dosage: 1 SPRAY IN EACH NOSTRIL, DAILY
     Route: 045
     Dates: start: 20150623
  9. SUTENT [Suspect]
     Active Substance: SUNITINIB MALATE
     Indication: METASTATIC RENAL CELL CARCINOMA
     Dosage: 50 MG, DAILY (DAY 1 CYCLE 1 - 50 MG DAILY FOR 4 OF EVERY 6 WEEKS)
     Route: 048
     Dates: start: 20150218
  10. SUTENT [Suspect]
     Active Substance: SUNITINIB MALATE
     Dosage: UNK (DAY 1 CYCLE 4 - CONTINUED DOSE REDUCTION)
     Dates: start: 20150708
  11. VITAMIN B3 [Concomitant]
     Active Substance: NIACIN
     Dosage: UNK
  12. FISH OIL OMEGA 3-6-9 [Concomitant]
     Dosage: 1 DF, 1X/DAY
     Dates: start: 20140416
  13. PROCHLORPERAZINE MALEATE. [Concomitant]
     Active Substance: PROCHLORPERAZINE MALEATE
     Indication: NAUSEA
     Dosage: 10 MG, 4X/DAY (EVERY 6 HOURS) AS NEEDED
     Route: 048
     Dates: start: 20140521
  14. CURCUMIN [Concomitant]
     Active Substance: CURCUMIN
     Dosage: 800 MG, 2X/DAY
     Dates: start: 20150430
  15. FERROUS SULFATE [Concomitant]
     Active Substance: FERROUS SULFATE\FERROUS SULFATE, DRIED
     Dosage: 1 DF, 2X/DAY (325 MG (65 MG IRON) TABLET)
     Dates: start: 20151106
  16. SUTENT [Suspect]
     Active Substance: SUNITINIB MALATE
     Dosage: 37.5 MG, DAILY (DAY 1 CYCLE 3 - 37.5 MG DAILY FOR 4 OF EVERY 6 WEEKS)
     Route: 048
     Dates: start: 20150527
  17. ALDACTONE [Concomitant]
     Active Substance: SPIRONOLACTONE
     Dosage: 12.5 MG, DAILY
     Route: 048
     Dates: start: 20150923
  18. SUTENT [Suspect]
     Active Substance: SUNITINIB MALATE
     Dosage: 50 MG, DAILY (DAY 1 CYCLE 2 - 50 MG DAILY FOR 4 OF EVERY 6 WEEKS)
     Route: 048
     Dates: start: 20150401
  19. IMODIUM A-D [Concomitant]
     Active Substance: LOPERAMIDE HYDROCHLORIDE
     Indication: DIARRHOEA
     Dosage: 4 MG, UNK (AFTER 1ST LOOSE STOOL )
     Route: 048
     Dates: start: 20150217
  20. IRON [Concomitant]
     Active Substance: IRON
     Indication: IRON DEFICIENCY ANAEMIA
     Dosage: UNK, 2X/DAY
     Route: 048
  21. LUTEIN [Concomitant]
     Active Substance: LUTEIN
     Dosage: 20 MG, 1X/DAY
     Dates: start: 20140416
  22. COREG [Concomitant]
     Active Substance: CARVEDILOL
     Dosage: 12.5 MG, 2X/DAY
     Route: 048
     Dates: start: 20150706
  23. COENZYME Q10 [Concomitant]
     Active Substance: UBIDECARENONE
     Dosage: 200 MG, 1X/DAY
     Dates: start: 20140416
  24. NORCO [Concomitant]
     Active Substance: ACETAMINOPHEN\HYDROCODONE BITARTRATE
     Indication: PAIN
     Dosage: 5 MG-325 MG; 1-2 TABLET BY ORAL ROUTE EVERY 6 HOURS AS NEEDED
     Route: 048
     Dates: start: 20150217
  25. LASIX [Concomitant]
     Active Substance: FUROSEMIDE
     Dosage: UNK
  26. ACIDOPHILUS [Concomitant]
     Active Substance: LACTOBACILLUS ACIDOPHILUS
     Dosage: UNK, DAILY
     Dates: start: 20140922
  27. COLACE [Concomitant]
     Active Substance: DOCUSATE SODIUM
     Indication: CONSTIPATION
     Dosage: 100 MG, 2X/DAY
     Route: 048
     Dates: start: 20151106
  28. SUTENT [Suspect]
     Active Substance: SUNITINIB MALATE
     Dosage: CYCLE 6 - DOSE REDUCTION TO 25 MG DAILY FOR 4 WEEKS FOLLOWED BY 2 WEEKS OFF
     Route: 048
     Dates: start: 20150926
  29. SUTENT [Suspect]
     Active Substance: SUNITINIB MALATE
     Dosage: 25 MG, CYCLIC (EVERY DAY FOR 4 WEEKS THEN 2 WEEKS OFF, STOPPED ON DAY 12)
     Route: 048
     Dates: start: 20151113, end: 20151217
  30. VITAMIN D3 [Concomitant]
     Active Substance: CHOLECALCIFEROL
     Dosage: 2000 IU, 1X/DAY
     Dates: start: 20140416
  31. RESVERATROL [Concomitant]
     Active Substance: RESVERATROL
     Dosage: 250 MG, 2X/DAY
     Dates: start: 20150430

REACTIONS (16)
  - Aortic stenosis [Unknown]
  - Dyspnoea exertional [Unknown]
  - Decreased appetite [Unknown]
  - Weight increased [Unknown]
  - Ejection fraction decreased [Unknown]
  - Condition aggravated [Unknown]
  - Disease progression [Unknown]
  - Fatigue [Not Recovered/Not Resolved]
  - Nodule [Unknown]
  - Diastolic dysfunction [Unknown]
  - Cardiomyopathy [Unknown]
  - Anaemia [Unknown]
  - Dilatation atrial [Unknown]
  - Cancer pain [Unknown]
  - Metastatic renal cell carcinoma [Unknown]
  - Skin lesion [Unknown]

NARRATIVE: CASE EVENT DATE: 201503
